FAERS Safety Report 8475578-1 (Version None)
Quarter: 2012Q2

REPORT INFORMATION
  Report Type: 
  Country: None (occurrence: None)
  Receive Date: 20120628
  Receipt Date: 20120625
  Transmission Date: 20120825
  Serious: Yes (Life-Threatening)
  Sender: FDA-Public Use
  Company Number: PHEH2011US011876

PATIENT
  Sex: Female

DRUGS (7)
  1. LEXAPRO [Concomitant]
     Dosage: UNK UKN, UNK
  2. GILENYA [Suspect]
     Indication: MULTIPLE SCLEROSIS
     Dosage: 0.5 MG, QD
     Route: 048
     Dates: start: 20111213, end: 20111213
  3. BISOPROLOL FUMARATE [Concomitant]
     Dosage: UNK UKN, UNK
  4. LEVOTHYROXINE [Concomitant]
     Dosage: UNK UKN, UNK
  5. LOSARTAN POTASSIUM [Concomitant]
     Dosage: UNK UKN, UNK
  6. FAMPRIDINE [Concomitant]
     Dosage: UNK UKN, UNK
     Route: 048
  7. BACLOFEN [Concomitant]
     Dosage: UNK UKN, UNK

REACTIONS (4)
  - BLOOD PRESSURE INCREASED [None]
  - MUSCULAR WEAKNESS [None]
  - FEELING ABNORMAL [None]
  - HYPOAESTHESIA [None]
